FAERS Safety Report 5018882-1 (Version None)
Quarter: 2006Q2

REPORT INFORMATION
  Report Type: 
  Country: None (occurrence: None)
  Receive Date: 20060606
  Receipt Date: 20060524
  Transmission Date: 20061013
  Serious: Yes (Hospitalization)
  Sender: FDA-Public Use
  Company Number: 2006SE02988

PATIENT
  Age: 27872 Day
  Sex: Male

DRUGS (13)
  1. BELOC-ZOK [Suspect]
     Indication: CARDIAC FAILURE
     Dosage: TOTAL DAILY DOSE: 25 MG ORAL
     Route: 048
     Dates: start: 20040402
  2. ROSUVASTATIN CODE NOT BROKEN [Suspect]
     Indication: CARDIAC FAILURE CHRONIC
     Route: 048
     Dates: start: 20040219, end: 20040711
  3. TORSEMIDE [Concomitant]
     Indication: CARDIAC FAILURE
     Dosage: TOTAL DAILY DOSE: 10 MG ORAL
     Route: 048
  4. ALDACTONE [Concomitant]
     Indication: CARDIAC FAILURE
     Dosage: TOTAL DAILY DOSE: 25 MG ORAL
     Route: 048
  5. MARKUMAR [Concomitant]
     Indication: ATRIAL FIBRILLATION
     Route: 048
  6. TAMSULOSIN HCL [Concomitant]
     Indication: BENIGN PROSTATIC HYPERPLASIA
     Dosage: TOTAL DAILY DOSE: 0.4 MG ORAL
     Route: 048
     Dates: start: 20050518
  7. DECORTIN-H [Concomitant]
     Indication: ASTHMA
     Dosage: TOTAL DAILY DOSE: 5 MG ORAL
     Route: 048
  8. SIMVASTATIN [Concomitant]
     Indication: HYPERCHOLESTEROLAEMIA
     Dosage: TOTAL DAILY DOSE: 20 MG ORAL
     Route: 048
     Dates: start: 20040712
  9. CORVO [Concomitant]
     Indication: CARDIAC FAILURE
     Dosage: TOTAL DAILY DOSE: 5 MG ORAL
     Route: 048
     Dates: start: 20040814
  10. PULMICORT [Concomitant]
     Indication: ASTHMA
     Dosage: TOTAL DAILY DOSE: 0.8 MG ORAL
     Route: 048
     Dates: start: 20040814
  11. XALATAN [Concomitant]
     Indication: CONJUNCTIVITIS
     Dosage: TOTAL DAILY DOSE: 50 MICROG OPHTHALMIC
     Route: 047
     Dates: start: 20040814
  12. NITROLINGUAL [Concomitant]
     Indication: CORONARY ARTERY DISEASE
     Route: 048
     Dates: start: 20041014
  13. CORANGIN [Concomitant]
     Indication: CORONARY ARTERY DISEASE
     Dosage: TOTAL DAILY DOSE: 80 MG ORAL
     Route: 048
     Dates: start: 20050518

REACTIONS (2)
  - CHRONIC OBSTRUCTIVE PULMONARY DISEASE [None]
  - HYPERCHOLESTEROLAEMIA [None]
